FAERS Safety Report 8961379 (Version 1)
Quarter: 2012Q4

REPORT INFORMATION
  Report Type: Report from Study
  Country: FR (occurrence: FR)
  Receive Date: 20121212
  Receipt Date: 20121212
  Transmission Date: 20130627
  Serious: Yes (Death, Hospitalization)
  Sender: FDA-Public Use
  Company Number: FR-BAXTER-2012BAX026057

PATIENT
  Age: 65 Year
  Sex: Male

DRUGS (8)
  1. ENDOXAN 2000 MG, LYOPHILISAT POUR SOLUTION INJECTABLE [Suspect]
     Indication: MANTLE CELL LYMPHOMA
     Route: 065
  2. RITUXIMAB [Suspect]
     Indication: MANTLE CELL LYMPHOMA
     Route: 065
  3. VINCRISTINE [Suspect]
     Indication: MANTLE CELL LYMPHOMA
     Route: 065
  4. PREDNISOLONE [Suspect]
     Indication: MANTLE CELL LYMPHOMA
     Route: 065
  5. DOXORUBICINE [Suspect]
     Indication: MANTLE CELL LYMPHOMA
     Route: 065
  6. DEPAKINE [Concomitant]
     Indication: DRUG USE FOR UNKNOWN INDICATION
     Route: 065
     Dates: start: 20091012, end: 20091024
  7. FRAXODI [Concomitant]
     Indication: DRUG USE FOR UNKNOWN INDICATION
     Route: 065
     Dates: start: 20091012, end: 20091020
  8. TAZOCILLINE [Concomitant]
     Indication: DRUG USE FOR UNKNOWN INDICATION
     Route: 065
     Dates: start: 20091012, end: 20091020

REACTIONS (3)
  - Disease progression [Fatal]
  - Septic shock [Unknown]
  - General physical health deterioration [Unknown]
